FAERS Safety Report 19619622 (Version 1)
Quarter: 2021Q3

REPORT INFORMATION
  Report Type: Spontaneous
  Country: US (occurrence: US)
  Receive Date: 20210728
  Receipt Date: 20210728
  Transmission Date: 20211014
  Serious: No
  Sender: FDA-Public Use
  Company Number: US-ROCHE-2668688

PATIENT
  Age: 54 Year
  Sex: Female

DRUGS (3)
  1. XELODA [Suspect]
     Active Substance: CAPECITABINE
     Route: 048
     Dates: start: 20200615
  2. XELODA [Suspect]
     Active Substance: CAPECITABINE
     Indication: BREAST CANCER
     Dosage: THERAPY ONGOING: NO
     Route: 048
     Dates: start: 20200612, end: 202008
  3. XELODA [Suspect]
     Active Substance: CAPECITABINE
     Dosage: ONGOING
     Route: 048
     Dates: start: 202006, end: 202008

REACTIONS (2)
  - Ophthalmic migraine [Recovered/Resolved]
  - Palmar-plantar erythrodysaesthesia syndrome [Recovering/Resolving]

NARRATIVE: CASE EVENT DATE: 20200727
